FAERS Safety Report 6935298-9 (Version None)
Quarter: 2010Q3

REPORT INFORMATION
  Report Type: 
  Country: None (occurrence: None)
  Receive Date: 20100822
  Receipt Date: 20100721
  Transmission Date: 20110219
  Serious: Yes (Other)
  Sender: FDA-Public Use
  Company Number: PHEH2010US03420

PATIENT
  Sex: Female
  Weight: 78.458 kg

DRUGS (40)
  1. AREDIA [Suspect]
     Indication: BREAST CANCER METASTATIC
     Dosage: 90 MG PER MONTH
     Route: 042
     Dates: start: 20030101
  2. AREDIA [Suspect]
     Indication: METASTASES TO BONE
  3. ARIMIDEX [Concomitant]
     Indication: BREAST CANCER
     Dosage: 1 DF, QD
     Route: 048
  4. DIOVAN [Concomitant]
  5. ADVAIR DISKUS 100/50 [Concomitant]
  6. OXYCODONE [Concomitant]
  7. CLINDAMYCIN [Concomitant]
  8. OXYCONTIN [Concomitant]
     Dosage: 80 MG, PRN
  9. ULTRACET [Concomitant]
     Dosage: 4-8 PER DAY
  10. PAXIL [Concomitant]
  11. EFFEXOR [Concomitant]
  12. BELLERGAL [Concomitant]
     Dosage: 1 DF, QD
     Route: 048
  13. CLONIDINE [Concomitant]
  14. PROZAC [Concomitant]
     Dosage: 1 DF, PRN
  15. VICODIN [Concomitant]
     Dosage: 1 DF, PRN
  16. DURAGESIC-100 [Concomitant]
     Dosage: 2 MG, PRN
  17. NAXIDIN [Concomitant]
  18. ACEPHEN [Concomitant]
     Dosage: 1 DF, QD
  19. FENERGAN [Concomitant]
  20. ANTACID TAB [Concomitant]
  21. PREDNISONE [Concomitant]
     Dosage: 80 MG, QD
  22. LASIX [Concomitant]
  23. MORPHINE [Concomitant]
  24. FENTANYL CITRATE [Concomitant]
  25. DILAUDID [Concomitant]
  26. SENOKOT                                 /UNK/ [Concomitant]
     Indication: CONSTIPATION
  27. LOTENSIN [Concomitant]
     Route: 048
  28. SOMA [Concomitant]
     Indication: MUSCLE SPASMS
     Dosage: 350 MG, TID
     Route: 048
  29. ADVIL LIQUI-GELS [Concomitant]
  30. ADRIAMYCIN PFS [Concomitant]
  31. CYTOXAN [Concomitant]
  32. CLEOCIN [Concomitant]
  33. ASMANEX TWISTHALER [Concomitant]
  34. PROVENTIL [Concomitant]
  35. PRILOSEC [Concomitant]
     Dosage: UNK
     Route: 048
  36. WELLBUTRIN [Concomitant]
     Dosage: 150 MG, BID
     Route: 048
  37. MAXZIDE [Concomitant]
     Dosage: 25 MG DAILY
  38. SCOPOLAMINE [Concomitant]
     Dosage: 105 MG EVERY 72 HRS
  39. FIBERCON (POLYCARBOPHIL CALCIUM) [Concomitant]
  40. PHENERGAN ^AVENTIS PHARMA^ [Concomitant]
     Dosage: 50 MG, BID

REACTIONS (28)
  - ANHEDONIA [None]
  - ANXIETY [None]
  - ARTHRITIS [None]
  - BACK PAIN [None]
  - BLADDER NEOPLASM [None]
  - BONE LESION [None]
  - BONE PAIN [None]
  - DEVICE RELATED INFECTION [None]
  - DISABILITY [None]
  - GAIT DISTURBANCE [None]
  - HIATUS HERNIA [None]
  - HOT FLUSH [None]
  - HYDRONEPHROSIS [None]
  - INJURY [None]
  - KNEE ARTHROPLASTY [None]
  - KYPHOSIS [None]
  - METASTASES TO BONE [None]
  - OSTEOARTHRITIS [None]
  - OSTEONECROSIS OF JAW [None]
  - PAIN [None]
  - PELVI-URETERIC OBSTRUCTION [None]
  - RADIOTHERAPY [None]
  - RENAL CYST [None]
  - RIB FRACTURE [None]
  - SCOLIOSIS [None]
  - SPINAL FRACTURE [None]
  - STAPHYLOCOCCAL INFECTION [None]
  - WHEELCHAIR USER [None]
